FAERS Safety Report 7662487-0 (Version None)
Quarter: 2011Q3

REPORT INFORMATION
  Report Type: 
  Country: None (occurrence: None)
  Receive Date: 20110805
  Receipt Date: 20101216
  Transmission Date: 20111222
  Serious: No
  Sender: FDA-Public Use
  Company Number: US-ABBOTT-10P-163-0692599-00

PATIENT
  Sex: Female
  Weight: 51.756 kg

DRUGS (5)
  1. CALCIUM CITRATE [Concomitant]
     Indication: PRODUCT USED FOR UNKNOWN INDICATION
  2. NIASPAN [Suspect]
     Indication: BLOOD CHOLESTEROL INCREASED
     Dates: start: 20101214
  3. ASPIRIN [Concomitant]
     Indication: THROMBOSIS PROPHYLAXIS
  4. METOPROLOL TARTRATE [Concomitant]
     Indication: HYPERTENSION
  5. PLAVIX [Concomitant]
     Indication: THROMBOSIS PROPHYLAXIS

REACTIONS (7)
  - PRURITUS [None]
  - POLLAKIURIA [None]
  - HEADACHE [None]
  - PERIPHERAL COLDNESS [None]
  - MUSCULOSKELETAL STIFFNESS [None]
  - DRY THROAT [None]
  - SKIN BURNING SENSATION [None]
